FAERS Safety Report 16781700 (Version 1)
Quarter: 2019Q3

REPORT INFORMATION
  Report Type: Spontaneous
  Country: US (occurrence: US)
  Receive Date: 20190906
  Receipt Date: 20190906
  Transmission Date: 20191005
  Serious: Yes (Death, Life-Threatening, Other)
  Sender: FDA-Public Use
  Company Number: US-FRESENIUS KABI-FK201909678

PATIENT
  Age: 69 Year
  Sex: Male
  Weight: 95.6 kg

DRUGS (4)
  1. HEPARIN SODIUM INJECTION, USP [Suspect]
     Active Substance: HEPARIN SODIUM
     Indication: ARTERIOVENOUS GRAFT THROMBOSIS
     Route: 042
     Dates: start: 20190826, end: 20190826
  2. PHENYLEPHRINE [Concomitant]
     Active Substance: PHENYLEPHRINE HYDROCHLORIDE
     Indication: BLOOD PRESSURE DECREASED
     Dosage: AT 14:19,14:22, AND 14:27
     Route: 065
     Dates: start: 20190826
  3. PROPOFOL. [Concomitant]
     Active Substance: PROPOFOL
     Indication: PRODUCT USED FOR UNKNOWN INDICATION
     Dosage: UNKNOWN
     Route: 065
     Dates: start: 20190826
  4. LIDOCAINE. [Concomitant]
     Active Substance: LIDOCAINE
     Indication: PRODUCT USED FOR UNKNOWN INDICATION
     Dosage: UNKNOWN
     Route: 065
     Dates: start: 20190826

REACTIONS (5)
  - Blood pressure decreased [Unknown]
  - Ventricular tachycardia [Unknown]
  - Tachycardia [Unknown]
  - Ventricular fibrillation [Unknown]
  - Shock [Unknown]

NARRATIVE: CASE EVENT DATE: 20190826
